FAERS Safety Report 11190204 (Version 2)
Quarter: 2015Q2

REPORT INFORMATION
  Report Type: Spontaneous
  Country: CN (occurrence: CN)
  Receive Date: 20150615
  Receipt Date: 20150623
  Transmission Date: 20150821
  Serious: Yes (Other)
  Sender: FDA-Public Use
  Company Number: CN-BRACCO-001888

PATIENT
  Age: 61 Year
  Sex: Female

DRUGS (7)
  1. URAPIDIL [Concomitant]
     Active Substance: URAPIDIL
     Dates: start: 201505
  2. HEPARIN [Concomitant]
     Active Substance: HEPARIN SODIUM
     Dates: start: 201505
  3. LEVOFLOXACIN. [Concomitant]
     Active Substance: LEVOFLOXACIN
     Indication: ANTIBIOTIC THERAPY
     Dates: start: 201505, end: 20150526
  4. CEFOPERAZONE [Concomitant]
     Active Substance: CEFOPERAZONE
     Indication: ANTIBIOTIC THERAPY
     Dates: start: 201505, end: 20150526
  5. IOPAMIRO [Suspect]
     Active Substance: IOPAMIDOL
     Indication: COMPUTERISED TOMOGRAM
     Route: 042
     Dates: start: 20150512, end: 20150512
  6. FLUCONAZOLE. [Concomitant]
     Active Substance: FLUCONAZOLE
     Dates: start: 20150527
  7. LATAMOXEF [Concomitant]
     Active Substance: MOXALACTAM
     Dates: start: 20150526

REACTIONS (2)
  - Cardiac failure chronic [Unknown]
  - Acute kidney injury [Unknown]

NARRATIVE: CASE EVENT DATE: 20150518
